FAERS Safety Report 7579088-5 (Version None)
Quarter: 2011Q2

REPORT INFORMATION
  Report Type: 
  Country: None (occurrence: None)
  Receive Date: 20110628
  Receipt Date: 20110614
  Transmission Date: 20111010
  Serious: Yes (Other)
  Sender: FDA-Public Use
  Company Number: DE-BAYER-2011-051189

PATIENT
  Age: 58 Year
  Sex: Female
  Weight: 73 kg

DRUGS (1)
  1. CIPRO [Suspect]
     Indication: SINUSITIS
     Dosage: 250 MG, UNK
     Dates: start: 20101229, end: 20101231

REACTIONS (3)
  - ERYTHEMA [None]
  - FEELING HOT [None]
  - POLYARTHRITIS [None]
